FAERS Safety Report 6417294-3 (Version None)
Quarter: 2009Q4

REPORT INFORMATION
  Report Type: 
  Country: None (occurrence: None)
  Receive Date: 20091028
  Receipt Date: 20091016
  Transmission Date: 20100525
  Serious: Yes (Hospitalization)
  Sender: FDA-Public Use
  Company Number: PHHY2009CA29868

PATIENT
  Sex: Male

DRUGS (3)
  1. CLOZARIL [Suspect]
     Indication: SCHIZOPHRENIA
     Dosage: 650 MG/DAY
     Route: 048
     Dates: start: 20071122, end: 20090717
  2. HALOPERIDOL [Concomitant]
     Dosage: 5 MG, BID
     Route: 048
  3. CLONAZEPAM [Concomitant]
     Dosage: 2 MG, BID
     Route: 048

REACTIONS (4)
  - BLOOD TEST ABNORMAL [None]
  - LEUKOPENIA [None]
  - NEUTROPHIL COUNT DECREASED [None]
  - WHITE BLOOD CELL COUNT DECREASED [None]
